FAERS Safety Report 7405115-1 (Version None)
Quarter: 2011Q1

REPORT INFORMATION
  Report Type: 
  Country: None (occurrence: None)
  Receive Date: 20110330
  Receipt Date: 20110316
  Transmission Date: 20110831
  Serious: Yes (Death)
  Sender: FDA-Public Use
  Company Number: AUR-APL-2011-01025

PATIENT
  Age: 82 Year
  Sex: Female
  Weight: 113 kg

DRUGS (3)
  1. LISINOPRIL [Suspect]
     Indication: PULMONARY HYPERTENSION
     Dosage: 5MG-DAILY-ORAL
     Route: 048
  2. REVATIO [Suspect]
     Indication: PULMONARY HYPERTENSION
     Dosage: 20MG-TID-ORAL
     Route: 048
     Dates: start: 20101101
  3. BUMEX [Suspect]
     Indication: PULMONARY HYPERTENSION
     Dosage: 1MG-TID-ORAL
     Route: 048
     Dates: start: 20110201

REACTIONS (1)
  - DEATH [None]
